FAERS Safety Report 18945610 (Version 1)
Quarter: 2021Q1

REPORT INFORMATION
  Report Type: Spontaneous
  Country: US (occurrence: US)
  Receive Date: 20210226
  Receipt Date: 20210226
  Transmission Date: 20210420
  Serious: Yes (Other)
  Sender: FDA-Public Use
  Company Number: US-BAYER-2021-071764

PATIENT
  Age: 49 Year

DRUGS (3)
  1. REGORAFENIB. [Suspect]
     Active Substance: REGORAFENIB
     Dosage: UNK
     Dates: start: 20191126, end: 20191209
  2. NIVOLUMAB [Concomitant]
     Active Substance: NIVOLUMAB
     Dosage: UNK
     Dates: start: 20191126, end: 20200103
  3. REGORAFENIB. [Suspect]
     Active Substance: REGORAFENIB
     Dosage: UNK
     Dates: start: 20200103, end: 20200107

REACTIONS (5)
  - Disease progression [None]
  - Asthenia [None]
  - Eating disorder [None]
  - Hypersomnia [None]
  - Fluid intake reduced [None]
